FAERS Safety Report 7910899-X (Version None)
Quarter: 2011Q4

REPORT INFORMATION
  Report Type: 
  Country: None (occurrence: None)
  Receive Date: 20111114
  Receipt Date: 20111102
  Transmission Date: 20120403
  Serious: No
  Sender: FDA-Public Use
  Company Number: US-BIOGENIDEC-2011BI033148

PATIENT
  Sex: Female

DRUGS (1)
  1. TYSABRI [Suspect]
     Indication: MULTIPLE SCLEROSIS
     Route: 042
     Dates: start: 20110817

REACTIONS (12)
  - HYPOAESTHESIA [None]
  - ARTHROPATHY [None]
  - FLUSHING [None]
  - MICTURITION URGENCY [None]
  - BALANCE DISORDER [None]
  - ANXIETY [None]
  - URINARY TRACT DISORDER [None]
  - INSOMNIA [None]
  - WHITE BLOOD CELL COUNT INCREASED [None]
  - URINE ODOUR ABNORMAL [None]
  - NAUSEA [None]
  - FATIGUE [None]
